FAERS Safety Report 11486412 (Version 1)
Quarter: 2015Q3

REPORT INFORMATION
  Report Type: Spontaneous
  Country: NL (occurrence: NL)
  Receive Date: 20150909
  Receipt Date: 20150909
  Transmission Date: 20151125
  Serious: No
  Sender: FDA-Public Use
  Company Number: NL-JAZZ-2015-NL-005560

PATIENT

DRUGS (1)
  1. SODIUM OXYBATE [Suspect]
     Active Substance: SODIUM OXYBATE
     Indication: PRODUCT USE ISSUE
     Dosage: UNKNOWN DOSE (DOSES VARYING FROM 89 TO 360 ML PER DAY)

REACTIONS (1)
  - Product use issue [Unknown]
